FAERS Safety Report 7964604-1 (Version None)
Quarter: 2011Q4

REPORT INFORMATION
  Report Type: 
  Country: None (occurrence: None)
  Receive Date: 20111208
  Receipt Date: 20111205
  Transmission Date: 20120403
  Serious: Yes (Hospitalization)
  Sender: FDA-Public Use
  Company Number: US-VERTEX PHARMACEUTICALS INC.-AE-2011-002923

PATIENT
  Sex: Male
  Weight: 96.248 kg

DRUGS (9)
  1. INSULIN FLEX PEN [Concomitant]
     Indication: DIABETES MELLITUS
  2. PROZAC [Concomitant]
     Indication: DEPRESSION
  3. INCIVEK [Suspect]
     Indication: HEPATITIS C
     Route: 048
     Dates: start: 20111008, end: 20111112
  4. RIBAVIRIN [Concomitant]
     Indication: HEPATITIS C
     Dates: start: 20111008, end: 20111112
  5. METFORMIN HCL [Concomitant]
     Indication: DIABETES MELLITUS
  6. PEGASYS [Concomitant]
     Indication: HEPATITIS C
     Dates: start: 20111008, end: 20111112
  7. NEXIUM [Concomitant]
     Indication: REFLUX GASTRITIS
  8. AMARYL [Concomitant]
     Route: 048
  9. LASIX [Concomitant]
     Route: 048

REACTIONS (3)
  - NAUSEA [None]
  - SLEEP DISORDER [None]
  - DIABETES MELLITUS INADEQUATE CONTROL [None]
